FAERS Safety Report 5174999-2 (Version None)
Quarter: 2006Q4

REPORT INFORMATION
  Report Type: 
  Country: None (occurrence: None)
  Receive Date: 20061206
  Receipt Date: 20061124
  Transmission Date: 20070319
  Serious: Yes (Hospitalization)
  Sender: FDA-Public Use
  Company Number: 2006146546

PATIENT
  Sex: Male

DRUGS (5)
  1. LIPITOR [Suspect]
     Indication: ARTERIAL OCCLUSIVE DISEASE
     Dosage: 1 IN 1 D, ORAL
     Route: 048
     Dates: start: 20050101, end: 20061001
  2. LIPITOR [Suspect]
     Indication: CARDIAC FAILURE CONGESTIVE
     Dosage: 1 IN 1 D, ORAL
     Route: 048
     Dates: start: 20050101, end: 20061001
  3. LIPITOR [Suspect]
     Indication: HYPERTENSION
     Dosage: 1 IN 1 D, ORAL
     Route: 048
     Dates: start: 20050101, end: 20061001
  4. LIPITOR [Suspect]
     Indication: PERIPHERAL ARTERIAL OCCLUSIVE DISEASE
     Dosage: 1 IN 1 D, ORAL
     Route: 048
     Dates: start: 20050101, end: 20061001
  5. INSULIN (INSULIN) [Concomitant]

REACTIONS (4)
  - INJURY [None]
  - PAIN IN EXTREMITY [None]
  - POOR PERIPHERAL CIRCULATION [None]
  - SCRATCH [None]
